FAERS Safety Report 6397826-4 (Version None)
Quarter: 2009Q4

REPORT INFORMATION
  Report Type: 
  Country: None (occurrence: None)
  Receive Date: 20091012
  Receipt Date: 20091005
  Transmission Date: 20100525
  Serious: Yes (Hospitalization)
  Sender: FDA-Public Use
  Company Number: US-GILEAD-2009-0023568

PATIENT
  Sex: Female
  Weight: 83.99 kg

DRUGS (20)
  1. LETAIRIS [Suspect]
     Indication: PULMONARY ARTERIAL HYPERTENSION
     Route: 048
     Dates: start: 20080923
  2. OXYGEN [Concomitant]
  3. ASPIRIN [Concomitant]
  4. LASIX [Concomitant]
  5. METOPROLOL [Concomitant]
  6. ALBUTEROL [Concomitant]
  7. SPIRIVA [Concomitant]
  8. NITROGLYCERIN [Concomitant]
  9. OCEAN NASAL SPRAY [Concomitant]
  10. LEVAQUIN [Concomitant]
  11. SIMVASTATIN [Concomitant]
  12. FOSAMAX [Concomitant]
  13. MUCINEX D [Concomitant]
  14. JANUVIA [Concomitant]
  15. AMBIEN [Concomitant]
  16. SERTRALINE HCL [Concomitant]
  17. NABUMETONE [Concomitant]
  18. FEXOFENADINE [Concomitant]
  19. POTASSIUM CHLORIDE [Concomitant]
  20. LEVOXYL [Concomitant]

REACTIONS (1)
  - CARDIAC FAILURE CONGESTIVE [None]
